FAERS Safety Report 9016050 (Version 1)
Quarter: 2013Q1

REPORT INFORMATION
  Report Type: Spontaneous
  Country: US (occurrence: US)
  Receive Date: 20130116
  Receipt Date: 20130116
  Transmission Date: 20140127
  Serious: Yes (Hospitalization)
  Sender: FDA-Public Use
  Company Number: PHHY2013US003212

PATIENT
  Age: 76 Year
  Sex: Male

DRUGS (14)
  1. CLOPIDOGREL [Suspect]
     Indication: ANTIPLATELET THERAPY
     Dosage: 75 MG/ DAY
  2. ACETYLSALICYLIC ACID [Suspect]
     Indication: ANTIPLATELET THERAPY
     Dosage: 81 MG/ DAY
  3. ACETYLSALICYLIC ACID [Suspect]
     Dosage: UNK UKN, UNK
     Dates: start: 201107
  4. CARVEDILOL [Concomitant]
     Dosage: 6.25 MG, BID
  5. BENAZEPRIL [Concomitant]
     Dosage: 20 MG, QD
  6. ROSUVASTATIN [Concomitant]
     Dosage: 5 MG, QD
  7. GLIPIZIDE [Concomitant]
     Dosage: 5 MG, QD
  8. ALLOPURINOL [Concomitant]
     Dosage: 100 MG, QD
  9. TAMSULOSIN [Concomitant]
     Dosage: 0.4 MG, QD
  10. OMEPRAZOLE [Concomitant]
     Dosage: 20 MG, QD
  11. PREDNISONE [Concomitant]
     Dosage: 10 MG, QD
  12. SALMETEROL/FLUTICASONPROPIONAAT [Concomitant]
  13. ALBUTEROL + IPRATROPIUM [Concomitant]
  14. TIOTROPIUM [Concomitant]

REACTIONS (8)
  - Hepatic haematoma [Recovered/Resolved]
  - Abdominal pain upper [Recovered/Resolved]
  - Abdominal tenderness [Recovered/Resolved]
  - Hepatic lesion [Unknown]
  - Liver abscess [Unknown]
  - Emotional distress [Unknown]
  - Rhonchi [Unknown]
  - Oedema peripheral [Unknown]
